FAERS Safety Report 18563468 (Version 1)
Quarter: 2020Q4

REPORT INFORMATION
  Report Type: Spontaneous
  Country: US (occurrence: US)
  Receive Date: 20201201
  Receipt Date: 20201201
  Transmission Date: 20210114
  Serious: Yes (Other)
  Sender: FDA-Public Use
  Company Number: US-LUPIN PHARMACEUTICALS INC.-2020-09493

PATIENT
  Age: 28 Year
  Sex: Female

DRUGS (1)
  1. LEVONORGESTREL. [Suspect]
     Active Substance: LEVONORGESTREL
     Indication: CONTRACEPTION
     Dosage: UNK
     Route: 015

REACTIONS (6)
  - Exposure during pregnancy [Unknown]
  - Suppressed lactation [Unknown]
  - Pregnancy with contraceptive device [Unknown]
  - Normal newborn [Unknown]
  - Exposure via breast milk [Unknown]
  - Device dislocation [Unknown]
